FAERS Safety Report 23393776 (Version 2)
Quarter: 2024Q1

REPORT INFORMATION
  Report Type: Spontaneous
  Country: US (occurrence: US)
  Receive Date: 20240111
  Receipt Date: 20240307
  Transmission Date: 20240410
  Serious: Yes (Other)
  Sender: FDA-Public Use
  Company Number: US-REGENERON PHARMACEUTICALS, INC.-2023-144610

PATIENT
  Sex: Female

DRUGS (1)
  1. EYLEA HD [Suspect]
     Active Substance: AFLIBERCEPT
     Indication: Product used for unknown indication
     Dosage: UNK, FORMUITON: EYLEA HD
     Dates: start: 2023

REACTIONS (2)
  - Eye inflammation [Unknown]
  - Metamorphopsia [Unknown]

NARRATIVE: CASE EVENT DATE: 20230101
